FAERS Safety Report 6369989-8 (Version None)
Quarter: 2009Q3

REPORT INFORMATION
  Report Type: 
  Country: None (occurrence: None)
  Receive Date: 20090923
  Receipt Date: 20070501
  Transmission Date: 20100115
  Serious: Yes (Hospitalization)
  Sender: FDA-Public Use
  Company Number: US-ASTRAZENECA-2006UW07930

PATIENT
  Age: 38 Year
  Sex: Female
  Weight: 74.4 kg

DRUGS (12)
  1. SEROQUEL [Suspect]
     Indication: DEPRESSION
     Route: 048
     Dates: start: 20020101
  2. SEROQUEL [Suspect]
     Indication: POST-TRAUMATIC STRESS DISORDER
     Route: 048
     Dates: start: 20020101
  3. SEROQUEL [Suspect]
     Indication: PSYCHOTIC DISORDER
     Route: 048
     Dates: start: 20020101
  4. SEROQUEL [Suspect]
     Dosage: 25 MG AM TO 600 MG HS
     Route: 048
     Dates: start: 20021217
  5. SEROQUEL [Suspect]
     Dosage: 25 MG AM TO 600 MG HS
     Route: 048
     Dates: start: 20021217
  6. SEROQUEL [Suspect]
     Dosage: 25 MG AM TO 600 MG HS
     Route: 048
     Dates: start: 20021217
  7. GEODON [Concomitant]
     Indication: PSYCHOTIC DISORDER
     Dates: start: 20040101
  8. GEODON [Concomitant]
     Dates: start: 20060831
  9. DEPAKOTE ER [Concomitant]
     Dosage: 500 HS
     Dates: start: 20060313
  10. RISPERDAL [Concomitant]
     Dosage: 1 MG TO 3 MG
     Route: 048
     Dates: start: 20060313
  11. LITHIUM [Concomitant]
     Indication: AFFECTIVE DISORDER
     Dates: start: 20060831
  12. TRAZODONE [Concomitant]
     Indication: SLEEP DISORDER
     Dates: start: 20060831

REACTIONS (3)
  - BLOOD GLUCOSE INCREASED [None]
  - DIABETES MELLITUS [None]
  - DIABETES MELLITUS INADEQUATE CONTROL [None]
